FAERS Safety Report 10225933 (Version 1)
Quarter: 2014Q2

REPORT INFORMATION
  Report Type: Spontaneous
  Country: DE (occurrence: DE)
  Receive Date: 20140609
  Receipt Date: 20140609
  Transmission Date: 20141212
  Serious: Yes (Life-Threatening, Hospitalization)
  Sender: FDA-Public Use
  Company Number: DE-WATSON-2013-25079

PATIENT
  Age: 72 Year
  Sex: Female
  Weight: 55 kg

DRUGS (16)
  1. FENTANYL ACTAVIS [Suspect]
     Indication: PAIN
     Dosage: 0.25 MG, DAILY
     Route: 042
     Dates: start: 20130729
  2. AZILECT [Suspect]
     Indication: PARKINSON^S DISEASE
     Route: 042
  3. METFORMIN HEXAL [Concomitant]
     Indication: TYPE 2 DIABETES MELLITUS
     Route: 048
  4. PANTOZOL 1 A PHARMA [Concomitant]
     Indication: PRODUCT USED FOR UNKNOWN INDICATION
     Route: 048
  5. SWEATOSAN [Concomitant]
     Indication: PRODUCT USED FOR UNKNOWN INDICATION
     Dosage: 1 DF, UNKNOWN
     Route: 065
  6. MADOPAR [Concomitant]
     Indication: PRODUCT USED FOR UNKNOWN INDICATION
     Route: 065
  7. AMANTADIN [Concomitant]
     Indication: PARKINSON^S DISEASE
     Dosage: 100 MG, UNKNOWN
     Route: 048
  8. XELEVIA [Concomitant]
     Indication: TYPE 2 DIABETES MELLITUS
     Route: 048
  9. STALEVO [Concomitant]
     Indication: PARKINSON^S DISEASE
     Route: 048
  10. DOMPERIDONE MOTILUM [Concomitant]
     Indication: PRODUCT USED FOR UNKNOWN INDICATION
     Route: 048
  11. MOVICOL EMRA [Concomitant]
     Indication: CONSTIPATION
     Route: 048
  12. MELPERON 25 1 PHARMA [Concomitant]
     Indication: PRODUCT USED FOR UNKNOWN INDICATION
     Route: 048
  13. SIMVASTATIN 1 A PHARMA 40 [Concomitant]
     Indication: HYPERCHOLESTEROLAEMIA
     Route: 048
  14. ASS HEXAL [Concomitant]
     Indication: PRODUCT USED FOR UNKNOWN INDICATION
     Dosage: 100 MG, UNKNOWN
     Route: 048
  15. RAMIPRIL 1 A PHARMA [Concomitant]
     Indication: HYPERTENSION
     Route: 048
  16. RAMIPRIL 1 A PHARMA PLUS5/12.5 [Concomitant]
     Indication: HYPERTENSION
     Route: 048

REACTIONS (5)
  - Coordination abnormal [Recovering/Resolving]
  - Drug interaction [Recovering/Resolving]
  - Hypertension [Recovering/Resolving]
  - Pyrexia [Recovering/Resolving]
  - Serotonin syndrome [Recovering/Resolving]
